FAERS Safety Report 17117696 (Version 1)
Quarter: 2019Q4

REPORT INFORMATION
  Report Type: Report from Study
  Country: US (occurrence: US)
  Receive Date: 20191205
  Receipt Date: 20191205
  Transmission Date: 20200122
  Serious: Yes (Hospitalization, Other)
  Sender: FDA-Public Use
  Company Number: US-JNJFOC-20191145737

PATIENT
  Sex: Female

DRUGS (1)
  1. STELARA [Suspect]
     Active Substance: USTEKINUMAB
     Indication: PRODUCT USED FOR UNKNOWN INDICATION
     Route: 058

REACTIONS (5)
  - Cellulitis [Unknown]
  - Pneumothorax [Unknown]
  - Pneumonia [Unknown]
  - Atrial fibrillation [Unknown]
  - Empyema [Unknown]

NARRATIVE: CASE EVENT DATE: 20191015
